FAERS Safety Report 13513528 (Version 3)
Quarter: 2017Q2

REPORT INFORMATION
  Report Type: Spontaneous
  Country: BR (occurrence: BR)
  Receive Date: 20170504
  Receipt Date: 20170615
  Transmission Date: 20170830
  Serious: Yes (Other)
  Sender: FDA-Public Use
  Company Number: BR-ROCHE-1927567

PATIENT
  Age: 83 Year
  Sex: Female

DRUGS (3)
  1. EUTHYROX [Concomitant]
     Active Substance: LEVOTHYROXINE SODIUM
  2. RIVOTRIL [Suspect]
     Active Substance: CLONAZEPAM
     Indication: INSOMNIA
     Route: 065
  3. RIVOTRIL [Suspect]
     Active Substance: CLONAZEPAM
     Route: 065
     Dates: start: 2010

REACTIONS (8)
  - Product taste abnormal [Unknown]
  - Insomnia [Unknown]
  - Somnolence [Unknown]
  - Uterine disorder [Recovered/Resolved]
  - Joint dislocation [Recovering/Resolving]
  - Limb discomfort [Unknown]
  - Fall [Unknown]
  - Off label use [Unknown]

NARRATIVE: CASE EVENT DATE: 201701
